FAERS Safety Report 5935076-3 (Version None)
Quarter: 2008Q4

REPORT INFORMATION
  Report Type: 
  Country: None (occurrence: None)
  Receive Date: 20081030
  Receipt Date: 20081013
  Transmission Date: 20090506
  Serious: No
  Sender: FDA-Public Use
  Company Number: US-BAYER-200828287NA

PATIENT
  Sex: Female
  Weight: 82 kg

DRUGS (1)
  1. YAZ [Suspect]
     Indication: CONTRACEPTION
     Route: 048
     Dates: start: 20080511

REACTIONS (5)
  - ABNORMAL WITHDRAWAL BLEEDING [None]
  - ACNE [None]
  - ALOPECIA [None]
  - BREAST ENLARGEMENT [None]
  - METRORRHAGIA [None]
